FAERS Safety Report 18870595 (Version 1)
Quarter: 2021Q1

REPORT INFORMATION
  Report Type: Spontaneous
  Country: US (occurrence: US)
  Receive Date: 20210210
  Receipt Date: 20210210
  Transmission Date: 20210420
  Serious: No
  Sender: FDA-Public Use
  Company Number: US-CELGENEUS-USA-20210201494

PATIENT
  Sex: Female
  Weight: 55.39 kg

DRUGS (4)
  1. THALOMID [Suspect]
     Active Substance: THALIDOMIDE
     Indication: PLASMA CELL MYELOMA
     Dosage: 100 MILLIGRAM
     Route: 048
     Dates: start: 200406
  2. THALOMID [Suspect]
     Active Substance: THALIDOMIDE
     Dosage: 300 MG ? 250 MG
     Route: 048
     Dates: start: 200407
  3. THALOMID [Suspect]
     Active Substance: THALIDOMIDE
     Dosage: 150 MG ? 100 MG
     Route: 048
     Dates: start: 200601
  4. THALOMID [Suspect]
     Active Substance: THALIDOMIDE
     Dosage: 150 MILLIGRAM
     Route: 048
     Dates: start: 201601

REACTIONS (1)
  - Insomnia [Unknown]
